FAERS Safety Report 13835790 (Version 3)
Quarter: 2017Q3

REPORT INFORMATION
  Report Type: Spontaneous
  Country: US (occurrence: US)
  Receive Date: 20170804
  Receipt Date: 20170911
  Transmission Date: 20171127
  Serious: Yes (Death, Hospitalization, Other)
  Sender: FDA-Public Use
  Company Number: US-BEH-2017082460

PATIENT
  Age: 86 Year
  Sex: Male
  Weight: 82.86 kg

DRUGS (37)
  1. HIZENTRA [Suspect]
     Active Substance: HUMAN IMMUNOGLOBULIN G
     Dosage: UNK
     Route: 058
  2. NAPROXEN. [Concomitant]
     Active Substance: NAPROXEN
  3. HIZENTRA [Suspect]
     Active Substance: HUMAN IMMUNOGLOBULIN G
     Indication: IMMUNODEFICIENCY COMMON VARIABLE
     Dosage: 12 G, QW
     Route: 058
     Dates: start: 20130625
  4. HIZENTRA [Suspect]
     Active Substance: HUMAN IMMUNOGLOBULIN G
     Dosage: UNK
     Route: 058
  5. VITAMIN C [Concomitant]
     Active Substance: ASCORBIC ACID
  6. HIZENTRA [Suspect]
     Active Substance: HUMAN IMMUNOGLOBULIN G
     Dosage: 12 G, QW
     Route: 058
     Dates: start: 20170808, end: 20170812
  7. EPINEPHRINE. [Concomitant]
     Active Substance: EPINEPHRINE
  8. CALCIUM ACETATE. [Concomitant]
     Active Substance: CALCIUM ACETATE
  9. DIGOXIN. [Concomitant]
     Active Substance: DIGOXIN
  10. REQUIP [Concomitant]
     Active Substance: ROPINIROLE HYDROCHLORIDE
  11. THEOPHYLLINE [Concomitant]
     Active Substance: THEOPHYLLINE ANHYDROUS
  12. COUMADIN [Concomitant]
     Active Substance: WARFARIN SODIUM
  13. CLONIDINE. [Concomitant]
     Active Substance: CLONIDINE
  14. NITROGLYCERINE [Concomitant]
     Active Substance: NITROGLYCERIN
  15. DIPHENHYDRAMINE. [Concomitant]
     Active Substance: DIPHENHYDRAMINE
  16. MUCINEX [Concomitant]
     Active Substance: GUAIFENESIN
  17. ATORVASTATIN [Concomitant]
     Active Substance: ATORVASTATIN
  18. AZITHROMYCIN ANHYDROUS. [Concomitant]
     Active Substance: AZITHROMYCIN ANHYDROUS
  19. TYLENOL EXTRA STRENGTH [Concomitant]
     Active Substance: ACETAMINOPHEN
  20. CALCIUM [Concomitant]
     Active Substance: CALCIUM
  21. MULTIVITAMIN                       /00097801/ [Concomitant]
     Active Substance: VITAMINS
  22. DESLORATADINE. [Concomitant]
     Active Substance: DESLORATADINE
  23. TRADJENTA [Concomitant]
     Active Substance: LINAGLIPTIN
  24. ADVAIR HFA [Concomitant]
     Active Substance: FLUTICASONE PROPIONATE\SALMETEROL XINAFOATE
  25. ALLOPURINOL. [Concomitant]
     Active Substance: ALLOPURINOL
  26. LEVOFLOXACIN. [Concomitant]
     Active Substance: LEVOFLOXACIN
  27. LIDOCAINE. [Concomitant]
     Active Substance: LIDOCAINE
  28. LIDOCAINE                          /00033402/ [Concomitant]
     Active Substance: LIDOCAINE
  29. ACETAMINOPHEN. [Concomitant]
     Active Substance: ACETAMINOPHEN
  30. LIDOCAINE/PRILOCAINE [Concomitant]
     Active Substance: LIDOCAINE\PRILOCAINE
  31. LANTUS [Concomitant]
     Active Substance: INSULIN GLARGINE
  32. AMOXICILLIN. [Concomitant]
     Active Substance: AMOXICILLIN
  33. SYNTHROID [Concomitant]
     Active Substance: LEVOTHYROXINE SODIUM
  34. GABAPENTIN. [Concomitant]
     Active Substance: GABAPENTIN
  35. FLUTICASONE. [Concomitant]
     Active Substance: FLUTICASONE
  36. DUONEB [Concomitant]
     Active Substance: ALBUTEROL SULFATE\IPRATROPIUM BROMIDE
  37. ASPIRIN. [Concomitant]
     Active Substance: ASPIRIN

REACTIONS (4)
  - Cardiac failure congestive [Fatal]
  - Pneumonia [Recovered/Resolved]
  - Cardiac arrest [Fatal]
  - Oedema due to cardiac disease [Fatal]

NARRATIVE: CASE EVENT DATE: 20170721
